FAERS Safety Report 7146502-9 (Version None)
Quarter: 2010Q4

REPORT INFORMATION
  Report Type: 
  Country: None (occurrence: None)
  Receive Date: 20101208
  Receipt Date: 20101201
  Transmission Date: 20110411
  Serious: Yes (Other)
  Sender: FDA-Public Use
  Company Number: BR-ROCHE-744260

PATIENT
  Sex: Male

DRUGS (1)
  1. ACTEMRA [Suspect]
     Route: 065

REACTIONS (1)
  - CARDIOMYOPATHY [None]
